FAERS Safety Report 17361153 (Version 1)
Quarter: 2020Q1

REPORT INFORMATION
  Report Type: Report from Study
  Country: DE (occurrence: DE)
  Receive Date: 20200203
  Receipt Date: 20200203
  Transmission Date: 20200409
  Serious: Yes (Other)
  Sender: FDA-Public Use
  Company Number: DE-PFIZER INC-2020042637

PATIENT
  Age: 45 Year
  Sex: Female
  Weight: 72 kg

DRUGS (14)
  1. TRASTUZUMAB. [Suspect]
     Active Substance: TRASTUZUMAB
     Dosage: 414 MG, EVERY 3 WEEKS
     Route: 042
     Dates: start: 20130701, end: 20130701
  2. PERTUZUMAB. [Suspect]
     Active Substance: PERTUZUMAB
     Indication: HER-2 POSITIVE BREAST CANCER
     Dosage: 840 MG, SINGLE (LOADING DOSE)
     Route: 042
     Dates: start: 20130425, end: 20130425
  3. DEXAMETHASON [DEXAMETHASONE] [Concomitant]
     Active Substance: DEXAMETHASONE
     Dosage: 4 MG, 1X/DAY
     Route: 042
     Dates: start: 20130426, end: 20130701
  4. DOCETAXEL. [Concomitant]
     Active Substance: DOCETAXEL
     Indication: HER-2 POSITIVE BREAST CANCER
     Dosage: 141 MG/M2, EVERY 3 WEEKS
     Route: 042
     Dates: start: 20130426, end: 20130607
  5. PERTUZUMAB. [Suspect]
     Active Substance: PERTUZUMAB
     Dosage: 420 MG, EVERY 3 WEEKS (MAINTAINANCE DOSE)
     Route: 042
     Dates: start: 20130517, end: 20140512
  6. KEVATRIL [Concomitant]
     Active Substance: GRANISETRON HYDROCHLORIDE
     Dosage: 3 MG, 1X/DAY
     Route: 042
     Dates: start: 20130426, end: 20130701
  7. KEVATRIL [Concomitant]
     Active Substance: GRANISETRON HYDROCHLORIDE
     Dosage: 2 MG, 1X/DAY
     Route: 048
     Dates: start: 20130426, end: 20130702
  8. BISOPROLOL [Concomitant]
     Active Substance: BISOPROLOL
     Indication: TACHYCARDIA
     Dosage: 2.5 MG, 1X/DAY
     Route: 048
     Dates: start: 20131023
  9. VITAMIN C [Concomitant]
     Active Substance: ASCORBIC ACID
     Dosage: 1000 MG, WEEKLY
     Route: 042
     Dates: start: 20130910, end: 20130926
  10. DOCETAXEL. [Concomitant]
     Active Substance: DOCETAXEL
     Dosage: 138 MG/M2, EVERY 3 WEEKS
     Route: 042
     Dates: start: 20130701, end: 20130701
  11. TRASTUZUMAB. [Suspect]
     Active Substance: TRASTUZUMAB
     Indication: BREAST CANCER
     Dosage: 568 MG, SINGLE
     Route: 042
     Dates: start: 20130425, end: 20130425
  12. TRASTUZUMAB. [Suspect]
     Active Substance: TRASTUZUMAB
     Dosage: 408 MG, EVERY 3 WEEKS
     Route: 042
     Dates: start: 20130910, end: 20140512
  13. TRASTUZUMAB. [Suspect]
     Active Substance: TRASTUZUMAB
     Dosage: 426 MG, EVERY 3 WEEKS
     Route: 042
     Dates: start: 20130517, end: 20130607
  14. DEXAMETHASON [DEXAMETHASONE] [Concomitant]
     Active Substance: DEXAMETHASONE
     Dosage: 8 MG, 1X/DAY
     Route: 048
     Dates: start: 20130426, end: 20130703

REACTIONS (5)
  - Cardiac disorder [Unknown]
  - Tachycardia [Recovered/Resolved]
  - Rash [Recovered/Resolved]
  - Polyneuropathy [Not Recovered/Not Resolved]
  - Diarrhoea [Recovered/Resolved]

NARRATIVE: CASE EVENT DATE: 20130427
